FAERS Safety Report 13062771 (Version 1)
Quarter: 2016Q4

REPORT INFORMATION
  Report Type: Report from Study
  Country: BR (occurrence: BR)
  Receive Date: 20161226
  Receipt Date: 20161226
  Transmission Date: 20170207
  Serious: Yes (Other)
  Sender: FDA-Public Use
  Company Number: PHHY2016BR122954

PATIENT
  Sex: Female
  Weight: 48 kg

DRUGS (5)
  1. OLCADIL [Concomitant]
     Active Substance: CLOXAZOLAM
     Indication: ANXIETY
     Dosage: 4 MG, QD (STARTED 7 YEARS AGO)
     Route: 048
  2. SERENATA [Concomitant]
     Active Substance: SERTRALINE HYDROCHLORIDE
     Indication: DEPRESSION
     Dosage: 50 MG, BID (STARTED 18 YEARS AGO)
     Route: 048
  3. EXELON [Suspect]
     Active Substance: RIVASTIGMINE TARTRATE
     Indication: PRODUCT USED FOR UNKNOWN INDICATION
     Dosage: 6 MG, QD (STARTED 5 YEARS AGO)
     Route: 065
  4. RIVASTIGMINE. [Suspect]
     Active Substance: RIVASTIGMINE
     Indication: MEMORY IMPAIRMENT
     Dosage: 1 DF, QHS
     Route: 048
  5. EXELON PATCH [Suspect]
     Active Substance: RIVASTIGMINE
     Indication: PRODUCT USED FOR UNKNOWN INDICATION
     Dosage: 4.6 MG, QD, PATCH 5 (CM2)
     Route: 062

REACTIONS (12)
  - Plasma cell myeloma [Not Recovered/Not Resolved]
  - Pubis fracture [Not Recovered/Not Resolved]
  - Tooth loss [Not Recovered/Not Resolved]
  - Pain in extremity [Not Recovered/Not Resolved]
  - Bone neoplasm [Not Recovered/Not Resolved]
  - Spinal pain [Unknown]
  - Hip fracture [Unknown]
  - Cerebrovascular accident [Unknown]
  - Gait disturbance [Unknown]
  - Visual impairment [Not Recovered/Not Resolved]
  - Vomiting [Unknown]
  - Leukaemia [Recovered/Resolved]
